FAERS Safety Report 16098748 (Version 3)
Quarter: 2019Q2

REPORT INFORMATION
  Report Type: Report from Study
  Country: FR (occurrence: FR)
  Receive Date: 20190321
  Receipt Date: 20190410
  Transmission Date: 20190711
  Serious: Yes (Hospitalization)
  Sender: FDA-Public Use
  Company Number: FR-ROCHE-2284248

PATIENT
  Age: 77 Year
  Sex: Female
  Weight: 77 kg

DRUGS (9)
  1. BEVACIZUMAB. [Suspect]
     Active Substance: BEVACIZUMAB
     Indication: OVARIAN CANCER
     Dosage: ON DAY 1?LAST DOSE PRIOR TO EVENT ON 07/FEB/2019
     Route: 042
     Dates: start: 20180328, end: 20190228
  2. ATEZOLIZUMAB. [Suspect]
     Active Substance: ATEZOLIZUMAB
     Indication: OVARIAN CANCER
     Dosage: ON DAY 1 FOR 6 CYCLES ?LAST DOSE PRIOR TO EVENT ON 07/FEB/2019
     Route: 042
     Dates: start: 20180328, end: 20190228
  3. GEMCITABINE [Suspect]
     Active Substance: GEMCITABINE\GEMCITABINE HYDROCHLORIDE
     Indication: OVARIAN CANCER
     Dosage: ON DAY 1 AND DAY 8?LAST DOSE PRIOR TO EVENT ON 02/AUG/2018
     Route: 042
     Dates: start: 20180328
  4. TELMISARTAN. [Concomitant]
     Active Substance: TELMISARTAN
     Indication: HYPERTENSION
  5. LEXOMIL [Concomitant]
     Active Substance: BROMAZEPAM
  6. LEVOTHYROX [Concomitant]
     Active Substance: LEVOTHYROXINE
  7. ALPRAZOLAM. [Concomitant]
     Active Substance: ALPRAZOLAM
  8. CARBOPLATIN. [Suspect]
     Active Substance: CARBOPLATIN
     Indication: OVARIAN CANCER
     Dosage: CARBOPLATIN AT A DOSE OF AUC-4 ON DAY 1?LAST DOSE PRIOR TO EVENT ON 02/AUG/2018
     Route: 042
     Dates: start: 20180328
  9. LOXEN (FRANCE) [Concomitant]
     Active Substance: NICARDIPINE HYDROCHLORIDE

REACTIONS (1)
  - Renal failure [Not Recovered/Not Resolved]

NARRATIVE: CASE EVENT DATE: 20190226
